FAERS Safety Report 12912419 (Version 1)
Quarter: 2016Q4

REPORT INFORMATION
  Report Type: Spontaneous
  Country: BR (occurrence: BR)
  Receive Date: 20161104
  Receipt Date: 20161104
  Transmission Date: 20170207
  Serious: Yes (Other)
  Sender: FDA-Public Use
  Company Number: BR-SA-2015SA099688

PATIENT
  Sex: Female
  Weight: 67 kg

DRUGS (8)
  1. GALVUS MET [Concomitant]
     Active Substance: METFORMIN HYDROCHLORIDE\VILDAGLIPTIN
     Indication: TYPE 1 DIABETES MELLITUS
     Route: 048
  2. HUMALOG [Concomitant]
     Active Substance: INSULIN LISPRO
     Indication: TYPE 1 DIABETES MELLITUS
     Dosage: 100IU CX 5 REFIS X 3ML
     Route: 058
  3. ARADOIS [Concomitant]
     Active Substance: LOSARTAN POTASSIUM
     Dosage: STRENGTH: 50 MG
     Route: 048
  4. LANTUS [Suspect]
     Active Substance: INSULIN GLARGINE
     Indication: TYPE 2 DIABETES MELLITUS
     Dosage: START DATE: SINCE APPROX. 4 YEARS
     Route: 058
  5. LANTUS [Suspect]
     Active Substance: INSULIN GLARGINE
     Indication: TYPE 2 DIABETES MELLITUS
     Dosage: START DATE: SINCE APPROX. 4 YEARS
     Route: 058
  6. AAS [Concomitant]
     Active Substance: ASPIRIN
     Route: 048
  7. CLIKSTAR [Concomitant]
     Active Substance: CLIKSTAR
     Dates: start: 2011
  8. LANTUS [Suspect]
     Active Substance: INSULIN GLARGINE
     Indication: TYPE 2 DIABETES MELLITUS
     Dosage: START DATE: SINCE APPROX. 4 YEARS
     Route: 058

REACTIONS (9)
  - Bone infarction [Unknown]
  - Injection site pain [Recovering/Resolving]
  - Hypoglycaemia [Unknown]
  - Osteoarthritis [Unknown]
  - Blood glucose abnormal [Unknown]
  - Application site haemorrhage [Unknown]
  - Off label use [Unknown]
  - Product use issue [Unknown]
  - Application site discolouration [Unknown]
